FAERS Safety Report 7490807-9 (Version None)
Quarter: 2011Q2

REPORT INFORMATION
  Report Type: 
  Country: None (occurrence: None)
  Receive Date: 20110517
  Receipt Date: 20110517
  Transmission Date: 20111010
  Serious: Yes (Hospitalization)
  Sender: FDA-Public Use
  Company Number: None

PATIENT
  Age: 83 Year
  Sex: Male
  Weight: 110 kg

DRUGS (4)
  1. PIPERACILLIN AND TAZOBACTAM [Concomitant]
  2. METOPROLOL TARTRATE [Concomitant]
  3. NPH INSULIN [Concomitant]
  4. VANCOMYCIN [Suspect]
     Indication: CELLULITIS
     Dosage: 1250MG DAILY IV BOLUS
     Route: 040
     Dates: start: 20110507, end: 20110509

REACTIONS (1)
  - BLOOD CREATINE INCREASED [None]
